FAERS Safety Report 25187315 (Version 1)
Quarter: 2025Q2

REPORT INFORMATION
  Report Type: Report from Study
  Country: DE (occurrence: DE)
  Receive Date: 20250411
  Receipt Date: 20250411
  Transmission Date: 20250717
  Serious: Yes (Hospitalization)
  Sender: GRIFOLS
  Company Number: DE-IGSA-BIG0034279

PATIENT
  Sex: Female
  Weight: 60 kg

DRUGS (8)
  1. PROLASTIN [Suspect]
     Active Substance: .ALPHA.1-PROTEINASE INHIBITOR HUMAN
     Indication: Alpha-1 antitrypsin deficiency
     Dosage: 5000 MILLIGRAM, Q.WK.
     Route: 042
     Dates: start: 202303
  2. ENTRESTO [Concomitant]
     Active Substance: SACUBITRIL\VALSARTAN
     Route: 048
  3. PREGABALIN [Concomitant]
     Active Substance: PREGABALIN
     Route: 048
  4. MORPHINE [Concomitant]
     Active Substance: MORPHINE
     Route: 065
  5. TORSEMIDE [Concomitant]
     Active Substance: TORSEMIDE
     Route: 048
  6. EPLERENONE [Concomitant]
     Active Substance: EPLERENONE
     Route: 048
  7. CHOLECALCIFEROL [Concomitant]
     Active Substance: CHOLECALCIFEROL
     Route: 048
  8. OXYGEN [Concomitant]
     Active Substance: OXYGEN

REACTIONS (4)
  - Haemorrhagic diathesis [Not Recovered/Not Resolved]
  - Epistaxis [Not Recovered/Not Resolved]
  - Impaired healing [Not Recovered/Not Resolved]
  - Iron deficiency [Not Recovered/Not Resolved]

NARRATIVE: CASE EVENT DATE: 20230101
